FAERS Safety Report 6505403-7 (Version None)
Quarter: 2009Q4

REPORT INFORMATION
  Report Type: 
  Country: None (occurrence: None)
  Receive Date: 20091218
  Receipt Date: 20091210
  Transmission Date: 20100525
  Serious: Yes (Other)
  Sender: FDA-Public Use
  Company Number: US-KINGPHARMUSA00001-K200901552

PATIENT
  Age: 51 Year
  Sex: Male

DRUGS (3)
  1. EMBEDA [Suspect]
     Dosage: 60 MG, TID
     Route: 048
     Dates: start: 20091113, end: 20091210
  2. RESTORIL [Concomitant]
     Dosage: UNK
  3. MIRALAX [Concomitant]
     Dosage: UNK

REACTIONS (1)
  - SYSTEMIC LUPUS ERYTHEMATOSUS [None]
